FAERS Safety Report 18366579 (Version 2)
Quarter: 2020Q4

REPORT INFORMATION
  Report Type: Spontaneous
  Country: GR (occurrence: GR)
  Receive Date: 20201009
  Receipt Date: 20201105
  Transmission Date: 20210114
  Serious: Yes (Death, Hospitalization)
  Sender: FDA-Public Use
  Company Number: GR-PFIZER INC-2020385434

PATIENT
  Age: 82 Year
  Sex: Female

DRUGS (6)
  1. CYCLOPHOSPHAMIDE. [Suspect]
     Active Substance: CYCLOPHOSPHAMIDE
     Dosage: UNK
     Dates: start: 202006
  2. PREDNISOLONE. [Suspect]
     Active Substance: PREDNISOLONE
     Dosage: UNK
     Dates: start: 202006
  3. RITUXIMAB. [Suspect]
     Active Substance: RITUXIMAB
     Dosage: 600 MG
     Route: 042
     Dates: start: 202006
  4. VINCRISTINE SULFATE. [Suspect]
     Active Substance: VINCRISTINE SULFATE
     Dosage: UNK
     Dates: start: 202006
  5. DOXORUBICIN HCL [Suspect]
     Active Substance: DOXORUBICIN HYDROCHLORIDE
     Dosage: UNK
     Dates: start: 202006
  6. POLATUZUMAB VEDOTIN. [Suspect]
     Active Substance: POLATUZUMAB VEDOTIN
     Dosage: 140 MG

REACTIONS (5)
  - Septic shock [Fatal]
  - Cardiac failure [Fatal]
  - Febrile neutropenia [Fatal]
  - Neoplasm recurrence [Unknown]
  - Soft tissue inflammation [Fatal]

NARRATIVE: CASE EVENT DATE: 202008
